FAERS Safety Report 6432135-6 (Version None)
Quarter: 2009Q4

REPORT INFORMATION
  Report Type: 
  Country: None (occurrence: None)
  Receive Date: 20091109
  Receipt Date: 20091026
  Transmission Date: 20100525
  Serious: Yes (Hospitalization)
  Sender: FDA-Public Use
  Company Number: GB-SOLVAY-00309006532

PATIENT
  Age: 47 Year

DRUGS (1)
  1. TESTOSTERONE [Suspect]
     Indication: SECONDARY HYPOGONADISM
     Dosage: DAILY DOSE: 2 DOSAGE FORM
     Route: 062
     Dates: start: 20070801, end: 20090128

REACTIONS (2)
  - MYOCARDIAL INFARCTION [None]
  - POLYCYTHAEMIA [None]
